FAERS Safety Report 5566040-4 (Version None)
Quarter: 2007Q4

REPORT INFORMATION
  Report Type: 
  Country: None (occurrence: None)
  Receive Date: 20071219
  Receipt Date: 20070109
  Transmission Date: 20080405
  Serious: No
  Sender: FDA-Public Use
  Company Number: US-KINGPHARMUSA00001-K200700013

PATIENT

DRUGS (1)
  1. APLISOL [Suspect]
     Dosage: UNK, SINGLE
     Route: 047
     Dates: start: 20070108, end: 20070108

REACTIONS (1)
  - ACCIDENTAL EXPOSURE [None]
